FAERS Safety Report 6905046-7 (Version None)
Quarter: 2010Q3

REPORT INFORMATION
  Report Type: 
  Country: None (occurrence: None)
  Receive Date: 20100804
  Receipt Date: 20090828
  Transmission Date: 20110219
  Serious: No
  Sender: FDA-Public Use
  Company Number: US-PFIZER INC-2009224830

PATIENT
  Sex: Female

DRUGS (5)
  1. LYRICA [Suspect]
     Indication: FIBROMYALGIA
     Dosage: UNK
     Dates: start: 20080601
  2. LEVOTHYROXINE [Concomitant]
     Indication: HYPOTHYROIDISM
     Dosage: UNK
  3. EFFEXOR [Concomitant]
     Dosage: 75 MG, 2X/DAY
  4. TRAZODONE [Concomitant]
     Dosage: UNK
  5. NEXIUM [Concomitant]
     Dosage: 40 MG, 2X/DAY

REACTIONS (1)
  - WEIGHT INCREASED [None]
